FAERS Safety Report 6251475-7 (Version None)
Quarter: 2009Q2

REPORT INFORMATION
  Report Type: 
  Country: None (occurrence: None)
  Receive Date: 20090630
  Receipt Date: 20090623
  Transmission Date: 20091009
  Serious: Yes (Hospitalization)
  Sender: FDA-Public Use
  Company Number: US-JNJFOC-20090608257

PATIENT
  Age: 61 Year
  Sex: Female
  Weight: 84.37 kg

DRUGS (5)
  1. IMODIUM A-D [Suspect]
     Route: 048
  2. IMODIUM A-D [Suspect]
     Indication: DIARRHOEA
     Dosage: DIFFERENT FREQUENCY AND DIFFERENT DAILY DOSING
     Route: 048
  3. LEVOXYL [Concomitant]
     Indication: THYROID THERAPY
     Dosage: FOR MANY YEARS
     Route: 065
  4. METOPROLOL SUCCINATE [Concomitant]
     Indication: BLOOD PRESSURE
     Dosage: A FEW YEARS
     Route: 065
  5. PRAVASTATIN [Concomitant]
     Indication: BLOOD CHOLESTEROL
     Route: 065

REACTIONS (4)
  - DIARRHOEA [None]
  - DYSGEUSIA [None]
  - PYREXIA [None]
  - WHITE BLOOD CELL COUNT INCREASED [None]
